FAERS Safety Report 6210744-7 (Version None)
Quarter: 2009Q2

REPORT INFORMATION
  Report Type: 
  Country: None (occurrence: None)
  Receive Date: 20090601
  Receipt Date: 20090518
  Transmission Date: 20091009
  Serious: Yes (Death, Other)
  Sender: FDA-Public Use
  Company Number: NZ-MYLANLABS-2009S1008735

PATIENT
  Age: 47 Year
  Sex: Female

DRUGS (5)
  1. ALLOPURINOL [Suspect]
     Indication: GOUT
     Route: 048
     Dates: start: 20080101, end: 20080101
  2. AMOXICILLIN [Suspect]
     Indication: DRUG USE FOR UNKNOWN INDICATION
     Route: 048
     Dates: start: 20080101, end: 20080213
  3. CANDESARTAN [Concomitant]
     Indication: DRUG USE FOR UNKNOWN INDICATION
     Dosage: L-TERM - ONGOING
     Route: 048
  4. NORFLOXACIN [Concomitant]
     Indication: URINARY TRACT INFECTION
     Route: 048
  5. BENDROFLUAZIDE [Concomitant]
     Route: 048
     Dates: start: 20070725, end: 20080101

REACTIONS (4)
  - DERMATITIS EXFOLIATIVE [None]
  - HEPATIC FAILURE [None]
  - PANCREATITIS [None]
  - RENAL FAILURE ACUTE [None]
